FAERS Safety Report 9911334 (Version 2)
Quarter: 2014Q1

REPORT INFORMATION
  Report Type: Spontaneous
  Country: US (occurrence: US)
  Receive Date: 20140219
  Receipt Date: 20140304
  Transmission Date: 20141002
  Serious: No
  Sender: FDA-Public Use
  Company Number: US-009507513-1402USA008428

PATIENT
  Sex: Female

DRUGS (2)
  1. NEXPLANON [Suspect]
     Indication: CONTRACEPTION
     Dosage: 68 MG, UNK
     Route: 059
     Dates: start: 201306
  2. IMPLANON [Concomitant]
     Dosage: UNK
     Route: 059

REACTIONS (1)
  - Implant site pruritus [Not Recovered/Not Resolved]
